FAERS Safety Report 18136389 (Version 1)
Quarter: 2020Q3

REPORT INFORMATION
  Report Type: Report from Study
  Country: US (occurrence: US)
  Receive Date: 20200811
  Receipt Date: 20200811
  Transmission Date: 20201103
  Serious: Yes (Hospitalization)
  Sender: FDA-Public Use
  Company Number: US-BAYER-2020-138913

PATIENT
  Age: 60 Year
  Sex: Female

DRUGS (4)
  1. STIVARGA [Suspect]
     Active Substance: REGORAFENIB
     Indication: COLORECTAL CANCER
     Dosage: 160 MG, QD, DAYS 1 TO 21 OF A 28 DAY CYCLE
     Route: 048
     Dates: start: 20200615
  2. KLOR?CON [Concomitant]
     Active Substance: POTASSIUM CHLORIDE
  3. FUROSEMIDE. [Concomitant]
     Active Substance: FUROSEMIDE
     Dosage: UNK
  4. DILTIAZEM HYDROCHLORIDE. [Concomitant]
     Active Substance: DILTIAZEM HYDROCHLORIDE

REACTIONS (6)
  - Presyncope [None]
  - Dizziness [Unknown]
  - Vomiting [Unknown]
  - Weight decreased [Unknown]
  - Hospitalisation [Unknown]
  - Food refusal [None]
